FAERS Safety Report 8003155-5 (Version None)
Quarter: 2011Q4

REPORT INFORMATION
  Report Type: 
  Country: None (occurrence: None)
  Receive Date: 20111222
  Receipt Date: 20111213
  Transmission Date: 20120403
  Serious: Yes (Other)
  Sender: FDA-Public Use
  Company Number: PHEH2011US011686

PATIENT
  Sex: Female

DRUGS (1)
  1. AREDIA [Suspect]
     Dosage: 90 MG, MONTHLY
     Route: 042

REACTIONS (14)
  - COLITIS [None]
  - PALMAR-PLANTAR ERYTHRODYSAESTHESIA SYNDROME [None]
  - MUSCULOSKELETAL CHEST PAIN [None]
  - METASTASES TO SPINE [None]
  - SCOLIOSIS [None]
  - NEUTROPENIA [None]
  - PLEURITIC PAIN [None]
  - HEPATIC CYST [None]
  - ORAL CANDIDIASIS [None]
  - ANAEMIA [None]
  - OESOPHAGITIS [None]
  - PLEURAL FIBROSIS [None]
  - INTERVERTEBRAL DISC SPACE NARROWING [None]
  - IRRITABLE BOWEL SYNDROME [None]
